FAERS Safety Report 11790347 (Version 2)
Quarter: 2015Q4

REPORT INFORMATION
  Report Type: Report from Study
  Country: ZA (occurrence: ZA)
  Receive Date: 20151201
  Receipt Date: 20151204
  Transmission Date: 20160305
  Serious: Yes (Hospitalization)
  Sender: FDA-Public Use
  Company Number: ZA-BIOGENIDEC-2015BI154916

PATIENT
  Age: 59 Year
  Sex: Male
  Weight: 45 kg

DRUGS (8)
  1. DOXYFENE [Concomitant]
     Indication: HAEMOPHILIC ARTHROPATHY
     Route: 048
     Dates: start: 20110523
  2. ANTIHEMOPHILIC FACTOR (RECOMBINANT), FC FUSION PROTEIN [Suspect]
     Active Substance: (1-743)-(1638-2332)-BLOOD-COAGULATION FACTOR VIII (SYNTHETIC HUMAN) FUSION PROTEIN WITH IMMUNOGLOBULIN G1 (SYNTHETIC HUMAN FC DOMAIN FRAGMENT), (1444-6^),(1447-9^)-BIS(DISULFIDE) WITH IMMUNOGLOBULIN G1 (SYNTHETIC HUMAN FC DOMAIN FRAGMENT)
     Indication: FACTOR VIII DEFICIENCY
     Dates: start: 20120618
  3. ANTIHEMOPHILIC FACTOR (RECOMBINANT), FC FUSION PROTEIN [Suspect]
     Active Substance: (1-743)-(1638-2332)-BLOOD-COAGULATION FACTOR VIII (SYNTHETIC HUMAN) FUSION PROTEIN WITH IMMUNOGLOBULIN G1 (SYNTHETIC HUMAN FC DOMAIN FRAGMENT), (1444-6^),(1447-9^)-BIS(DISULFIDE) WITH IMMUNOGLOBULIN G1 (SYNTHETIC HUMAN FC DOMAIN FRAGMENT)
     Indication: FACTOR VIII DEFICIENCY
  4. ALUVIA [Concomitant]
     Active Substance: LOPINAVIR\RITONAVIR
     Indication: VIRAL INFECTION
     Route: 048
     Dates: start: 20090921
  5. STOCRIN [Concomitant]
     Active Substance: EFAVIRENZ
     Indication: VIRAL INFECTION
     Route: 048
     Dates: start: 20090921
  6. CENTRUM [Concomitant]
     Active Substance: VITAMINS
     Indication: SUPPLEMENTATION THERAPY
     Route: 048
     Dates: start: 2007
  7. ZERIT [Concomitant]
     Active Substance: STAVUDINE
     Indication: VIRAL INFECTION
     Route: 048
     Dates: start: 20000808
  8. CALCIUM SANDOZ [Concomitant]
     Active Substance: CALCIUM
     Indication: SUPPLEMENTATION THERAPY
     Route: 048
     Dates: start: 2009

REACTIONS (1)
  - Dehydration [Recovered/Resolved]

NARRATIVE: CASE EVENT DATE: 20151120
